FAERS Safety Report 4886438-7 (Version None)
Quarter: 2006Q1

REPORT INFORMATION
  Report Type: 
  Country: None (occurrence: None)
  Receive Date: 20060120
  Receipt Date: 20060112
  Transmission Date: 20060701
  Serious: Yes (Hospitalization, Disabling)
  Sender: FDA-Public Use
  Company Number: US-MERCK-0601USA01817

PATIENT
  Age: 57 Year
  Sex: Male
  Weight: 91 kg

DRUGS (2)
  1. VIOXX [Suspect]
     Indication: PAIN
     Route: 048
     Dates: start: 20010109, end: 20010704
  2. VIOXX [Suspect]
     Indication: ANALGESIC INTERVENTION SUPPORTIVE THERAPY
     Route: 048
     Dates: start: 20010109, end: 20010704

REACTIONS (15)
  - ADVERSE EVENT [None]
  - BACK DISORDER [None]
  - CHEST PAIN [None]
  - DEPRESSION [None]
  - DIAPHRAGMATIC RUPTURE [None]
  - FEMUR FRACTURE [None]
  - GALLBLADDER DISORDER [None]
  - JOINT INJURY [None]
  - MUSCLE DISORDER [None]
  - NERVOUS SYSTEM DISORDER [None]
  - OSTEOPOROSIS [None]
  - PULMONARY EMBOLISM [None]
  - ROAD TRAFFIC ACCIDENT [None]
  - TACHYCARDIA [None]
  - THROMBOSIS [None]
